FAERS Safety Report 15573332 (Version 1)
Quarter: 2018Q4

REPORT INFORMATION
  Report Type: Spontaneous
  Country: US (occurrence: US)
  Receive Date: 20181101
  Receipt Date: 20181101
  Transmission Date: 20190205
  Serious: No
  Sender: FDA-Public Use
  Company Number: US-ELI_LILLY_AND_COMPANY-US201810012468

PATIENT
  Age: 68 Year
  Sex: Female

DRUGS (1)
  1. TRULICITY [Suspect]
     Active Substance: DULAGLUTIDE
     Indication: DIABETES MELLITUS
     Dosage: 1.5 MG, WEEKLY (1/W)
     Route: 058
     Dates: start: 2015

REACTIONS (4)
  - Headache [Recovering/Resolving]
  - Trigger finger [Unknown]
  - Injection site haemorrhage [Recovering/Resolving]
  - Product dose omission [Recovering/Resolving]

NARRATIVE: CASE EVENT DATE: 20181003
